FAERS Safety Report 5956108-2 (Version None)
Quarter: 2008Q4

REPORT INFORMATION
  Report Type: 
  Country: None (occurrence: None)
  Receive Date: 20081118
  Receipt Date: 20081110
  Transmission Date: 20090506
  Serious: Yes (Death, Hospitalization)
  Sender: FDA-Public Use
  Company Number: SE-JNJFOC-20081102377

PATIENT
  Age: 68 Year
  Sex: Male

DRUGS (14)
  1. REMICADE [Suspect]
     Indication: COLITIS ULCERATIVE
     Route: 042
  2. CIPROFLOXACIN HCL [Suspect]
     Indication: NEPHROLITHIASIS
  3. IMUREL [Suspect]
     Indication: DRUG USE FOR UNKNOWN INDICATION
  4. TRAMADOL HCL [Concomitant]
  5. INHIBACE [Concomitant]
  6. OMEPRAZOLE [Concomitant]
  7. BISOPROLOL FUMARATE [Concomitant]
  8. SIMVASTATIN [Concomitant]
  9. ALVEDON [Concomitant]
  10. PRED-CLYSMA [Concomitant]
     Route: 054
  11. SOBRIL [Concomitant]
  12. PREDNISOLONE [Concomitant]
  13. ASPIRIN [Concomitant]
  14. IMOVAN [Concomitant]

REACTIONS (6)
  - ALVEOLITIS [None]
  - FALL [None]
  - NEPHROLITHIASIS [None]
  - PNEUMOCYSTIS JIROVECI PNEUMONIA [None]
  - TENDON RUPTURE [None]
  - THROMBOTIC THROMBOCYTOPENIC PURPURA [None]
